FAERS Safety Report 7911245-8 (Version None)
Quarter: 2011Q4

REPORT INFORMATION
  Report Type: 
  Country: None (occurrence: None)
  Receive Date: 20111108
  Receipt Date: 20111024
  Transmission Date: 20120403
  Serious: Yes (Hospitalization, Other)
  Sender: FDA-Public Use
  Company Number: 2011MA015514

PATIENT
  Sex: Female
  Weight: 58.514 kg

DRUGS (6)
  1. VERAPAMIL [Concomitant]
  2. ASPIRIN [Concomitant]
  3. HEPARIN [Concomitant]
  4. HYDROCHLOROTHIAZIDE [Concomitant]
  5. DIGOXIN [Suspect]
     Indication: PALPITATIONS
     Dosage: 0.25 MG;QD;PO
     Route: 048
     Dates: start: 20051206, end: 20071120
  6. METOPROLOL SUCCINATE [Concomitant]

REACTIONS (8)
  - VIRAL INFECTION [None]
  - ARRHYTHMIA [None]
  - ECONOMIC PROBLEM [None]
  - CARDIOMEGALY [None]
  - ISCHAEMIA [None]
  - MULTIPLE INJURIES [None]
  - ELECTROCARDIOGRAM CHANGE [None]
  - TOXICITY TO VARIOUS AGENTS [None]
